FAERS Safety Report 4591620-2 (Version None)
Quarter: 2005Q1

REPORT INFORMATION
  Report Type: 
  Country: None (occurrence: None)
  Receive Date: 20050225
  Receipt Date: 20050117
  Transmission Date: 20050727
  Serious: Yes (Other)
  Sender: FDA-Public Use
  Company Number: PHNU2005DE00583

PATIENT
  Sex: Male

DRUGS (3)
  1. ESIDRIX [Suspect]
     Indication: HYPERTENSION
     Dosage: UNK, UNK
     Dates: start: 20050101, end: 20050101
  2. SANDIMMUNE [Concomitant]
     Dates: start: 20040101
  3. CORTISONE [Concomitant]
     Dates: start: 20040101

REACTIONS (2)
  - AUTOIMMUNE THROMBOCYTOPENIA [None]
  - EPISTAXIS [None]
